FAERS Safety Report 4560183-X (Version None)
Quarter: 2005Q1

REPORT INFORMATION
  Report Type: 
  Country: None (occurrence: None)
  Receive Date: 20050119
  Receipt Date: 20051231
  Transmission Date: 20050727
  Serious: Yes (Hospitalization)
  Sender: FDA-Public Use
  Company Number: 6012414

PATIENT
  Age: 58 Year
  Sex: Male

DRUGS (1)
  1. LOZOL [Suspect]
     Dosage: 5,00 MG (5 MG, 1 IN  D) ORAL
     Route: 048
     Dates: start: 20040401, end: 20040825

REACTIONS (3)
  - ERYTHEMA MULTIFORME [None]
  - PEMPHIGOID [None]
  - PRURITUS [None]
